FAERS Safety Report 21557009 (Version 6)
Quarter: 2023Q2

REPORT INFORMATION
  Report Type: Report from Study
  Country: CN (occurrence: CN)
  Receive Date: 20221104
  Receipt Date: 20230621
  Transmission Date: 20230721
  Serious: Yes (Hospitalization)
  Sender: FDA-Public Use
  Company Number: CN-KARYOPHARM-2022KPT001306

PATIENT
  Age: 72 Year
  Sex: Male
  Weight: 60 kg

DRUGS (12)
  1. SELINEXOR [Suspect]
     Active Substance: SELINEXOR
     Indication: Diffuse large B-cell lymphoma
     Dosage: 60 MG, CYCLIC
     Route: 048
     Dates: start: 20220824, end: 20221016
  2. SELINEXOR [Suspect]
     Active Substance: SELINEXOR
     Dosage: 40 MG, WEEKLY
     Route: 048
     Dates: start: 20221108, end: 20221201
  3. RITUXIMAB [Suspect]
     Active Substance: RITUXIMAB
     Indication: Diffuse large B-cell lymphoma
     Dosage: 700 MG, CYCLIC
     Route: 041
     Dates: start: 20220823, end: 20221009
  4. RITUXIMAB [Suspect]
     Active Substance: RITUXIMAB
     Dosage: 700 MG, CYCLIC
     Route: 041
     Dates: start: 20221108, end: 20221201
  5. CYCLOPHOSPHAMIDE [Suspect]
     Active Substance: CYCLOPHOSPHAMIDE
     Indication: Diffuse large B-cell lymphoma
     Dosage: 0.7 G, CYCLIC
     Route: 041
     Dates: start: 20220824, end: 20221010
  6. CYCLOPHOSPHAMIDE [Suspect]
     Active Substance: CYCLOPHOSPHAMIDE
     Dosage: 1 G, CYCLIC
     Route: 041
     Dates: start: 20221108, end: 20221201
  7. PREDNISONE [Suspect]
     Active Substance: PREDNISONE
     Indication: Diffuse large B-cell lymphoma
     Dosage: 30 MG, TID
     Route: 048
     Dates: start: 20220824, end: 20221014
  8. PREDNISONE [Suspect]
     Active Substance: PREDNISONE
     Dosage: 100 MG, CYCLIC
     Route: 048
     Dates: start: 20221108, end: 20221205
  9. VINCRISTINE [Suspect]
     Active Substance: VINCRISTINE
     Indication: Diffuse large B-cell lymphoma
     Dosage: 1 MG, CYCLIC
     Route: 042
     Dates: start: 20220824, end: 20221014
  10. VINCRISTINE [Suspect]
     Active Substance: VINCRISTINE
     Dosage: 2 MG, CYCLIC
     Route: 042
     Dates: start: 20221108, end: 20221201
  11. EPIRUBICIN [Suspect]
     Active Substance: EPIRUBICIN
     Indication: Diffuse large B-cell lymphoma
     Dosage: 60 MG, CYCLIC
     Route: 041
     Dates: start: 20220824, end: 20221010
  12. EPIRUBICIN [Suspect]
     Active Substance: EPIRUBICIN
     Dosage: 90 MG, CYCLIC
     Route: 041
     Dates: start: 20221108, end: 20221201

REACTIONS (5)
  - White blood cell count decreased [Not Recovered/Not Resolved]
  - Febrile neutropenia [Recovered/Resolved]
  - Pneumonia [Recovered/Resolved]
  - Anaemia [Recovered/Resolved with Sequelae]
  - Neutrophil count decreased [Not Recovered/Not Resolved]

NARRATIVE: CASE EVENT DATE: 20221019
